FAERS Safety Report 6490016-6 (Version None)
Quarter: 2009Q4

REPORT INFORMATION
  Report Type: 
  Country: None (occurrence: None)
  Receive Date: 20091211
  Receipt Date: 20091201
  Transmission Date: 20100525
  Serious: Yes (Life-Threatening, Hospitalization)
  Sender: FDA-Public Use
  Company Number: US-JNJFOC-20091001974

PATIENT
  Sex: Female
  Weight: 73.57 kg

DRUGS (6)
  1. REMICADE [Suspect]
     Route: 042
     Dates: start: 20070101, end: 20090101
  2. REMICADE [Suspect]
     Route: 042
     Dates: start: 20070101, end: 20090101
  3. REMICADE [Suspect]
     Indication: RHEUMATOID ARTHRITIS
     Route: 042
     Dates: start: 20070101, end: 20090101
  4. CHEMOTHERAPY [Concomitant]
  5. CHEMOTHERAPY [Concomitant]
     Indication: COLON CANCER
  6. IMCLONE 1121B [Concomitant]

REACTIONS (5)
  - COMA [None]
  - FEELING ABNORMAL [None]
  - PAIN [None]
  - PERICARDIAL EFFUSION [None]
  - PLEURAL EFFUSION [None]
